FAERS Safety Report 10142222 (Version 3)
Quarter: 2014Q2

REPORT INFORMATION
  Report Type: Report from Study
  Country: CA (occurrence: CA)
  Receive Date: 20140430
  Receipt Date: 20140505
  Transmission Date: 20141212
  Serious: Yes (Hospitalization, Other)
  Sender: FDA-Public Use
  Company Number: CA-ROCHE-1319269

PATIENT
  Age: 52 Year
  Sex: Male

DRUGS (5)
  1. ACTEMRA [Suspect]
     Indication: RHEUMATOID ARTHRITIS
     Route: 042
     Dates: start: 20130815
  2. MELOXICAM [Concomitant]
  3. LYRICA [Concomitant]
  4. PREDNISONE [Concomitant]
  5. TEGRETOL LP [Concomitant]

REACTIONS (3)
  - Infection [Unknown]
  - Loss of consciousness [Unknown]
  - Paraesthesia oral [Unknown]
